FAERS Safety Report 22178423 (Version 1)
Quarter: 2023Q2

REPORT INFORMATION
  Report Type: Spontaneous
  Country: US (occurrence: US)
  Receive Date: 20230405
  Receipt Date: 20230405
  Transmission Date: 20230722
  Serious: Yes (Hospitalization, Other)
  Sender: FDA-Public Use
  Company Number: US-AMERICAN REGENT INC-2023000775

PATIENT
  Age: 23 Year

DRUGS (1)
  1. TESTOSTERONE CYPIONATE [Suspect]
     Active Substance: TESTOSTERONE CYPIONATE
     Indication: Transgender hormonal therapy
     Dosage: UNK
     Route: 065

REACTIONS (4)
  - Idiopathic intracranial hypertension [Recovering/Resolving]
  - Obesity [Unknown]
  - Product use in unapproved indication [Unknown]
  - Product use issue [Unknown]
